FAERS Safety Report 15558227 (Version 1)
Quarter: 2018Q4

REPORT INFORMATION
  Report Type: Spontaneous
  Country: TR (occurrence: TR)
  Receive Date: 20181027
  Receipt Date: 20181027
  Transmission Date: 20190205
  Serious: Yes (Death, Hospitalization)
  Sender: FDA-Public Use
  Company Number: PHHY2018TR136377

PATIENT
  Age: 76 Year
  Sex: Female

DRUGS (1)
  1. ONEPTUS [Suspect]
     Active Substance: SACUBITRIL\VALSARTAN
     Indication: PRODUCT USED FOR UNKNOWN INDICATION
     Dosage: UNK
     Route: 065

REACTIONS (9)
  - Increased appetite [Unknown]
  - Rash [Unknown]
  - Sepsis [Fatal]
  - Gastrointestinal disorder [Unknown]
  - Obesity [Unknown]
  - Cardiac failure [Fatal]
  - Erythema [Unknown]
  - Pruritus [Unknown]
  - Bronchitis [Unknown]
